FAERS Safety Report 7321300-1 (Version None)
Quarter: 2011Q1

REPORT INFORMATION
  Report Type: 
  Country: None (occurrence: None)
  Receive Date: 20110228
  Receipt Date: 20100311
  Transmission Date: 20110831
  Serious: Yes (Hospitalization)
  Sender: FDA-Public Use
  Company Number: US-PFIZER INC-2010032191

PATIENT
  Sex: Female

DRUGS (2)
  1. GEODON [Suspect]
     Indication: BIPOLAR DISORDER
  2. GEODON [Suspect]
     Indication: SCHIZOPHRENIA
     Dosage: 80 MG IN THE MORNING AND 160MG AT NIGHT

REACTIONS (1)
  - DYSPNOEA [None]
